FAERS Safety Report 16993145 (Version 1)
Quarter: 2019Q4

REPORT INFORMATION
  Report Type: Spontaneous
  Country: FR (occurrence: FR)
  Receive Date: 20191105
  Receipt Date: 20191105
  Transmission Date: 20200122
  Serious: Yes (Hospitalization)
  Sender: FDA-Public Use
  Company Number: FR-009507513-1910FRA016033

PATIENT
  Age: 67 Year
  Sex: Male
  Weight: 92 kg

DRUGS (7)
  1. LOPRESSOR [Concomitant]
     Active Substance: METOPROLOL TARTRATE
     Route: 048
  2. COZAAR [Suspect]
     Active Substance: LOSARTAN POTASSIUM
     Indication: HYPERTENSION
     Dosage: 1 DOSAGE FORM, 1 DAY
     Route: 048
  3. LYRICA [Concomitant]
     Active Substance: PREGABALIN
     Route: 048
  4. TRILEPTAL [Suspect]
     Active Substance: OXCARBAZEPINE
     Indication: FACIAL NEURALGIA
     Dosage: 3 DOSAGE FORM, 1 DAY
     Route: 048
  5. TAHOR [Concomitant]
     Active Substance: ATORVASTATIN CALCIUM
     Route: 048
  6. ASPEGIC [Concomitant]
     Route: 048
  7. AMLOR [Concomitant]
     Active Substance: AMLODIPINE BESYLATE
     Route: 048

REACTIONS (2)
  - Hyponatraemia [Recovered/Resolved]
  - Altered state of consciousness [Recovered/Resolved]

NARRATIVE: CASE EVENT DATE: 20190817
